FAERS Safety Report 8239562 (Version 4)
Quarter: 2012Q4

REPORT INFORMATION
  Report Type: 
  Country: US (occurrence: US)
  Receive Date: 20111110
  Receipt Date: 20121023
  Transmission Date: 20130627
  Serious: Yes (Hospitalization, Other)
  Sender: FDA-Public Use
  Company Number: US-US-EMD SERONO, INC.-7093975

PATIENT
  Sex: Male
  Weight: 70 kg

DRUGS (4)
  1. REBIF [Suspect]
     Indication: MULTIPLE SCLEROSIS
     Route: 058
     Dates: end: 201107
  2. REBIF [Suspect]
     Route: 058
     Dates: start: 201109
  3. PROCARDIA [Concomitant]
     Indication: HYPERTENSION
  4. RAMIPRIL [Concomitant]
     Indication: HYPERTENSION

REACTIONS (7)
  - Arthritis infective [Unknown]
  - Haemarthrosis [Unknown]
  - Fall [Unknown]
  - Lower limb fracture [Unknown]
  - Decubitus ulcer [Unknown]
  - Dysstasia [Unknown]
  - Injection site pain [Unknown]
